FAERS Safety Report 7746568-9 (Version None)
Quarter: 2011Q3

REPORT INFORMATION
  Report Type: 
  Country: None (occurrence: None)
  Receive Date: 20110913
  Receipt Date: 20110901
  Transmission Date: 20111222
  Serious: Yes (Life-Threatening, Other)
  Sender: FDA-Public Use
  Company Number: GB-ALLERGAN-1111699US

PATIENT
  Age: 14 Year
  Sex: Female

DRUGS (4)
  1. CYCLOSPORINE [Suspect]
     Indication: IMMUNOSUPPRESSION
     Route: 065
  2. PREDNISOLONE [Suspect]
     Indication: MICROSCOPIC POLYANGIITIS
     Route: 048
  3. CYCLOPHOSPHAMIDE [Suspect]
     Indication: MICROSCOPIC POLYANGIITIS
     Route: 042
  4. CYCLOPHOSPHAMIDE [Suspect]
     Route: 048

REACTIONS (8)
  - URINARY TRACT INFECTION [None]
  - INFECTIOUS MONONUCLEOSIS [None]
  - INFERTILITY [None]
  - LOWER RESPIRATORY TRACT INFECTION [None]
  - ALOPECIA [None]
  - GASTROENTERITIS [None]
  - OTITIS MEDIA [None]
  - NASAL SEPTUM DISORDER [None]
